FAERS Safety Report 22179145 (Version 1)
Quarter: 2023Q2

REPORT INFORMATION
  Report Type: Report from Study
  Country: IL (occurrence: IL)
  Receive Date: 20230406
  Receipt Date: 20230406
  Transmission Date: 20230721
  Serious: Yes (Hospitalization)
  Sender: FDA-Public Use
  Company Number: IL-ABBVIE-4709949

PATIENT
  Age: 82 Year
  Sex: Male

DRUGS (3)
  1. CARBIDOPA\LEVODOPA [Suspect]
     Active Substance: CARBIDOPA\LEVODOPA
     Indication: Parkinson^s disease
     Dosage: THERAPY DURATION (HRS)  REMAINS AT 24
     Route: 050
     Dates: start: 20190903
  2. CARBIDOPA\LEVODOPA [Suspect]
     Active Substance: CARBIDOPA\LEVODOPA
     Dosage: MORNING DOSE(ML) 8.0,CONTINUOUS DOSE(ML/H)3.8 ,EXTRA DOSE(ML)1.5,NIGHT CONTINUOUS DOSE (ML/H)2.0?...
     Route: 050
  3. AMANTADINE [Concomitant]
     Active Substance: AMANTADINE
     Indication: Product used for unknown indication

REACTIONS (5)
  - Gastrostomy [Unknown]
  - Bedridden [Unknown]
  - Embedded device [Recovering/Resolving]
  - Communication disorder [Unknown]
  - Device placement issue [Recovering/Resolving]

NARRATIVE: CASE EVENT DATE: 20230328
